FAERS Safety Report 5981853-2 (Version None)
Quarter: 2008Q4

REPORT INFORMATION
  Report Type: 
  Country: None (occurrence: None)
  Receive Date: 20081202
  Receipt Date: 20081118
  Transmission Date: 20090506
  Serious: Yes (Hospitalization)
  Sender: FDA-Public Use
  Company Number: KV200800300

PATIENT
  Age: 70 Year
  Sex: Female
  Weight: 72.6 kg

DRUGS (2)
  1. ISOSORBIDE MONONITRATE      (ISOSORBIDE MONONITRATE) SLOW RELEASE [Suspect]
     Indication: DRUG USE FOR UNKNOWN INDICATION
     Dosage: 60 MG, QD, ORAL
     Route: 048
     Dates: start: 20030101
  2. MULTIPLE MEDS [Concomitant]

REACTIONS (3)
  - DIZZINESS [None]
  - LOSS OF CONSCIOUSNESS [None]
  - PRODUCT QUALITY ISSUE [None]
